FAERS Safety Report 5013950-2 (Version None)
Quarter: 2006Q2

REPORT INFORMATION
  Report Type: 
  Country: None (occurrence: None)
  Receive Date: 20060525
  Receipt Date: 20060508
  Transmission Date: 20061013
  Serious: Yes (Death, Hospitalization)
  Sender: FDA-Public Use
  Company Number: EWC041241935

PATIENT
  Age: 70 Year
  Sex: Female
  Weight: 74.8 kg

DRUGS (7)
  1. PEMETREXED (PEMETREXED) VIAL [Suspect]
     Indication: BREAST CANCER
     Dosage: 850 MG INTRAVENOUS
     Route: 042
     Dates: start: 20041104, end: 20041125
  2. ^DOXORUBICIN ^ (DOXORUBICIN) [Suspect]
     Indication: BREAST CANCER
     Dosage: 85 MG OTHER INTRAVENOUS
     Route: 042
     Dates: start: 20041104, end: 20041125
  3. FOLIC ACID [Concomitant]
  4. VITAMIN B12 [Concomitant]
  5. DURAGESIC-100 [Concomitant]
  6. AMARYL [Concomitant]
  7. ENALAPRIL MALEATE [Concomitant]

REACTIONS (10)
  - BLOOD POTASSIUM DECREASED [None]
  - BREATH SOUNDS ABNORMAL [None]
  - DIARRHOEA [None]
  - DISEASE PROGRESSION [None]
  - DRUG TOXICITY [None]
  - GRANULOCYTE COUNT INCREASED [None]
  - HYPOKALAEMIA [None]
  - PERFORMANCE STATUS DECREASED [None]
  - PULMONARY THROMBOSIS [None]
  - RED BLOOD CELL COUNT DECREASED [None]
